FAERS Safety Report 5802180-X (Version None)
Quarter: 2008Q3

REPORT INFORMATION
  Report Type: 
  Country: None (occurrence: None)
  Receive Date: 20080707
  Receipt Date: 20080625
  Transmission Date: 20090109
  Serious: Yes (Other)
  Sender: FDA-Public Use
  Company Number: US-PFIZER INC-2008052830

PATIENT
  Age: 38 Year
  Sex: Male

DRUGS (1)
  1. CHANTIX [Suspect]
     Indication: SMOKING CESSATION THERAPY

REACTIONS (9)
  - ABNORMAL BEHAVIOUR [None]
  - CAFFEINE CONSUMPTION [None]
  - CONFUSIONAL STATE [None]
  - EATING DISORDER [None]
  - HALLUCINATION [None]
  - HOMICIDAL IDEATION [None]
  - NIGHTMARE [None]
  - SUICIDAL BEHAVIOUR [None]
  - SUICIDAL IDEATION [None]
